FAERS Safety Report 21824544 (Version 3)
Quarter: 2023Q1

REPORT INFORMATION
  Report Type: Spontaneous
  Country: US (occurrence: US)
  Receive Date: 20230105
  Receipt Date: 20230322
  Transmission Date: 20230417
  Serious: No
  Sender: FDA-Public Use
  Company Number: US-ALLERGAN-2236073US

PATIENT
  Age: 1 Year

DRUGS (17)
  1. BOTOX [Suspect]
     Active Substance: ONABOTULINUMTOXINA
     Indication: Maternal exposure during breast feeding
     Dosage: 155 UNITS, SINGLE
     Route: 063
     Dates: start: 20220509, end: 20220509
  2. LEXAPRO [Suspect]
     Active Substance: ESCITALOPRAM OXALATE
     Indication: Maternal exposure during breast feeding
     Dosage: 1.5 TABLET(S) EVERY DAY
     Route: 063
     Dates: start: 20220331
  3. UBRELVY [Suspect]
     Active Substance: UBROGEPANT
     Indication: Maternal exposure during breast feeding
     Dosage: 100 MG, QD
     Route: 063
     Dates: start: 20220603
  4. AZITHROMYCIN [Suspect]
     Active Substance: AZITHROMYCIN
     Indication: Maternal exposure during breast feeding
     Dosage: 250 MG
     Route: 063
     Dates: start: 20210806
  5. ERGOCALCIFEROL [Suspect]
     Active Substance: ERGOCALCIFEROL
     Indication: Maternal exposure during breast feeding
     Dosage: UNK, QD
     Route: 063
     Dates: start: 20190614
  6. POTASSIUM NITRATE\SODIUM FLUORIDE [Suspect]
     Active Substance: POTASSIUM NITRATE\SODIUM FLUORIDE
     Indication: Maternal exposure during breast feeding
     Dosage: UNK
     Route: 063
     Dates: start: 20210806
  7. EMGALITY [Suspect]
     Active Substance: GALCANEZUMAB-GNLM
     Indication: Maternal exposure during breast feeding
     Dosage: UNK
     Route: 063
     Dates: start: 20220923
  8. KEPPRA [Suspect]
     Active Substance: LEVETIRACETAM
     Indication: Maternal exposure during breast feeding
     Dosage: 1 DF, BID
     Route: 063
     Dates: start: 20220422
  9. LEVOTHYROXINE SODIUM [Suspect]
     Active Substance: LEVOTHYROXINE SODIUM
     Indication: Maternal exposure during breast feeding
     Dosage: 1 DF, QD
     Route: 063
     Dates: start: 20220328
  10. LEVOTHYROXINE SODIUM [Suspect]
     Active Substance: LEVOTHYROXINE SODIUM
     Dosage: 1 DF, QD
     Route: 063
     Dates: start: 20211117, end: 20220328
  11. LEVOTHYROXINE SODIUM [Suspect]
     Active Substance: LEVOTHYROXINE SODIUM
     Dosage: 1 DF, QD
     Route: 063
     Dates: start: 20210723, end: 20211117
  12. NURTEC ODT [Suspect]
     Active Substance: RIMEGEPANT SULFATE
     Indication: Maternal exposure during breast feeding
     Dosage: UNK
     Route: 063
     Dates: start: 20220923
  13. TYLENOL [Suspect]
     Active Substance: ACETAMINOPHEN
     Indication: Maternal exposure during breast feeding
     Dosage: 1 TABLET(S) 4 HOURS AS NEEDED
     Route: 063
     Dates: start: 20210811, end: 20220811
  14. IBUPROFEN [Suspect]
     Active Substance: IBUPROFEN
     Indication: Maternal exposure during breast feeding
     Dosage: 1 DF EVERY 6 HOURS, AS NEEDED
     Route: 063
     Dates: start: 20210811, end: 20220811
  15. SYNTHROID [Suspect]
     Active Substance: LEVOTHYROXINE SODIUM
     Indication: Maternal exposure during breast feeding
     Dosage: 88 MICROGRAM EVERY DAY. DAILY WITH 1.5 DOSES ON SUNDAY
     Route: 063
     Dates: start: 20181204, end: 20221006
  16. ORTHO MICRONOR [Suspect]
     Active Substance: NORETHINDRONE
     Indication: Maternal exposure during breast feeding
     Dosage: 1 DF, QD
     Route: 063
     Dates: start: 20210923, end: 20221006
  17. RIZATRIPTAN [Suspect]
     Active Substance: RIZATRIPTAN
     Indication: Maternal exposure during breast feeding
     Dosage: 1 DF, PRN
     Route: 063
     Dates: start: 20220803

REACTIONS (1)
  - Maternal exposure during breast feeding [Unknown]
